FAERS Safety Report 8581419 (Version 1)
Quarter: 2020Q3

REPORT INFORMATION
  Report Type: Spontaneous
  Country: US (occurrence: US)
  Receive Date: 20120525
  Receipt Date: 20120525
  Transmission Date: 20201105
  Serious: Yes (Other)
  Sender: FDA-Public Use
  Company Number: US-BAXTER-2012BAX006330

PATIENT
  Age: 55 Year
  Sex: Female
  Weight: 73 kg

DRUGS (18)
  1. ROCURONIUM BROMIDE. [Suspect]
     Active Substance: ROCURONIUM BROMIDE
     Route: 042
     Dates: start: 20120426
  2. LISINOPRIL. [Concomitant]
     Active Substance: LISINOPRIL
     Route: 065
  3. HYDROCHLOROTHIAZIDE. [Concomitant]
     Active Substance: HYDROCHLOROTHIAZIDE
     Route: 065
  4. VITAMIN D NOS [Concomitant]
     Active Substance: VITAMIN D NOS
     Route: 065
  5. SODIUM BICARBONATE. [Concomitant]
     Active Substance: SODIUM BICARBONATE
     Route: 065
  6. CEFAZOLIN [Concomitant]
     Active Substance: CEFAZOLIN
     Route: 065
     Dates: start: 20120426
  7. FUROSEMIDE. [Concomitant]
     Active Substance: FUROSEMIDE
     Dates: start: 20120426
  8. LIPITOR [Concomitant]
     Active Substance: ATORVASTATIN CALCIUM
     Route: 065
  9. MANNITOL. [Concomitant]
     Active Substance: MANNITOL
     Dates: start: 20120426
  10. MIDAZOLAM HYDROCHLORIDE. [Suspect]
     Active Substance: MIDAZOLAM HYDROCHLORIDE
     Route: 042
     Dates: start: 20120426
  11. MORPHINE [Suspect]
     Active Substance: MORPHINE
     Route: 042
     Dates: start: 20120426
  12. ONDANSETRON [Concomitant]
     Active Substance: ONDANSETRON
     Dates: start: 20120426
  13. EPHEDRINE. [Suspect]
     Active Substance: EPHEDRINE
     Route: 042
     Dates: start: 20120426
  14. SUPRANE [Suspect]
     Active Substance: DESFLURANE
     Route: 055
     Dates: start: 20120426
  15. MYCOPHENOLATE MOFETIL. [Suspect]
     Active Substance: MYCOPHENOLATE MOFETIL
     Route: 042
     Dates: start: 20120426, end: 20120430
  16. FENTANYL. [Suspect]
     Active Substance: FENTANYL
     Route: 042
     Dates: start: 20120426
  17. PROPOFOL. [Suspect]
     Active Substance: PROPOFOL
     Route: 042
     Dates: start: 20120426
  18. METHYLPREDNISOLONE ACETATE. [Concomitant]
     Active Substance: METHYLPREDNISOLONE ACETATE
     Dates: start: 20120426

REACTIONS (6)
  - Bradycardia [Unknown]
  - Chills [Unknown]
  - Lethargy [Unknown]
  - Encephalopathy [Recovered/Resolved]
  - Pyrexia [Unknown]
  - Mental status changes [Unknown]

NARRATIVE: CASE EVENT DATE: 20120426
